FAERS Safety Report 8769823 (Version 2)
Quarter: 2012Q4

REPORT INFORMATION
  Report Type: 
  Country: JP (occurrence: JP)
  Receive Date: 20120905
  Receipt Date: 20121105
  Transmission Date: 20130627
  Serious: Yes (Other)
  Sender: FDA-Public Use
  Company Number: JP-009507513-1208JPN012310

PATIENT
  Age: 68 Year
  Sex: Female
  Weight: 56 kg

DRUGS (17)
  1. PEGINTRON [Suspect]
     Indication: HEPATITIS C
     Dosage: 1.5mcg/kg/week
     Route: 058
     Dates: start: 20120705, end: 20120909
  2. PEGINTRON [Suspect]
     Dosage: 1.5 UNK, UNK
     Route: 058
     Dates: start: 20120927
  3. REBETOL [Suspect]
     Indication: HEPATITIS C
     Dosage: 200 mg, qd
     Route: 048
     Dates: start: 20120705, end: 20120712
  4. REBETOL [Suspect]
     Dosage: 200 mg, qd
     Route: 048
     Dates: start: 20120713, end: 20120726
  5. REBETOL [Suspect]
     Dosage: 200 UNK, UNK
     Route: 048
     Dates: start: 20120731, end: 20120910
  6. REBETOL [Suspect]
     Dosage: 200 mg, qd
     Route: 048
     Dates: start: 20120927
  7. TELAVIC [Suspect]
     Indication: HEPATITIS C
     Dosage: 1500 mg, qd
     Route: 048
     Dates: start: 20120705, end: 20120720
  8. TELAVIC [Suspect]
     Dosage: 750 mg, qd
     Route: 048
     Dates: start: 20120721, end: 20120725
  9. TELAVIC [Suspect]
     Dosage: 1500 mg, qd
     Route: 048
     Dates: start: 20120726, end: 20120728
  10. TELAVIC [Suspect]
     Dosage: 750 mg, qd
     Route: 048
     Dates: start: 20120729
  11. TELAVIC [Suspect]
     Dosage: 1250 mg, UNK
     Route: 048
     Dates: end: 20120903
  12. TELAVIC [Suspect]
     Dosage: 750 mg, UNK
     Route: 048
     Dates: start: 20120904, end: 20120910
  13. EQUA [Concomitant]
     Dosage: 100 mg, qd
     Route: 048
  14. ZETIA [Concomitant]
     Dosage: 10 mg, qd
     Route: 048
  15. CALBLOCK [Concomitant]
     Dosage: 16 mg, qd
     Route: 048
  16. MICARDIS [Concomitant]
     Dosage: 40 mg, qd
     Route: 048
  17. FESIN [Concomitant]
     Indication: HAEMOGLOBIN DECREASED
     Dosage: 40 mg, UNK
     Route: 042

REACTIONS (1)
  - Blood creatinine increased [Not Recovered/Not Resolved]
